FAERS Safety Report 6597795-8 (Version None)
Quarter: 2010Q1

REPORT INFORMATION
  Report Type: 
  Country: None (occurrence: None)
  Receive Date: 20100216
  Receipt Date: 20100202
  Transmission Date: 20100710
  Serious: Yes (Hospitalization)
  Sender: FDA-Public Use
  Company Number: 2009-196588-NL

PATIENT
  Age: 19 Year
  Sex: Female
  Weight: 77.1115 kg

DRUGS (2)
  1. NUVARING [Suspect]
     Indication: CONTRACEPTION
     Dosage: VAG
     Route: 067
     Dates: start: 20040301, end: 20060113
  2. AUGMENTIN (CON.) [Concomitant]

REACTIONS (31)
  - ABORTION MISSED [None]
  - ABORTION SPONTANEOUS [None]
  - BLOOD PRESSURE INCREASED [None]
  - BLOOD THYROID STIMULATING HORMONE DECREASED [None]
  - CAESAREAN SECTION [None]
  - COAGULATION FACTOR VIII LEVEL INCREASED [None]
  - DRUG EXPOSURE DURING PREGNANCY [None]
  - GOITRE [None]
  - HEPATOSPLENOMEGALY [None]
  - HUMAN PAPILLOMA VIRUS TEST POSITIVE [None]
  - INDUCED LABOUR [None]
  - INTRA-UTERINE DEATH [None]
  - LOCAL SWELLING [None]
  - PELVIC ABSCESS [None]
  - PELVIC INFLAMMATORY DISEASE [None]
  - POST PROCEDURAL CELLULITIS [None]
  - POST PROCEDURAL HYPOTHYROIDISM [None]
  - PREGNANCY [None]
  - PROTEINURIA [None]
  - PULMONARY EMBOLISM [None]
  - PURULENCE [None]
  - RUBELLA IMMUNITY CONFIRMED [None]
  - SMEAR CERVIX ABNORMAL [None]
  - THYROID CYST [None]
  - THYROID FIBROSIS [None]
  - THYROID HAEMORRHAGE [None]
  - THYROID MASS [None]
  - TINEA INFECTION [None]
  - TREATMENT NONCOMPLIANCE [None]
  - TWIN PREGNANCY [None]
  - WOUND INFECTION [None]
